FAERS Safety Report 4501938-7 (Version None)
Quarter: 2004Q4

REPORT INFORMATION
  Report Type: 
  Country: None (occurrence: None)
  Receive Date: 20041115
  Receipt Date: 20041115
  Transmission Date: 20050328
  Serious: Yes (Life-Threatening, Hospitalization, Disabling)
  Sender: FDA-Public Use
  Company Number: None

PATIENT
  Sex: Female
  Weight: 79.3795 kg

DRUGS (4)
  1. GENERIC PSEUDOEPHEDRINE     ?       ? [Suspect]
     Indication: NASOPHARYNGITIS
     Dosage: ONE RED PILL    EVERY 4 HR    ORAL
     Route: 048
     Dates: start: 20041010, end: 20041020
  2. GENERIC PSEUDOEPHEDRINE     ?       ? [Suspect]
     Indication: SINUSITIS
     Dosage: ONE RED PILL    EVERY 4 HR    ORAL
     Route: 048
     Dates: start: 20041010, end: 20041020
  3. ENTEX LA     ?    ? [Suspect]
     Indication: NASOPHARYNGITIS
     Dosage: ?      ?     ORAL
     Route: 048
     Dates: start: 20041020, end: 20041021
  4. ENTEX LA     ?    ? [Suspect]
     Indication: SINUSITIS
     Dosage: ?      ?     ORAL
     Route: 048
     Dates: start: 20041020, end: 20041021

REACTIONS (4)
  - CARDIAC ARREST [None]
  - CONVULSION [None]
  - LOSS OF CONSCIOUSNESS [None]
  - VENTRICULAR FIBRILLATION [None]
